FAERS Safety Report 14873260 (Version 1)
Quarter: 2018Q2

REPORT INFORMATION
  Report Type: Spontaneous
  Country: US (occurrence: US)
  Receive Date: 20180510
  Receipt Date: 20180510
  Transmission Date: 20180711
  Serious: Yes (Hospitalization)
  Sender: FDA-Public Use
  Company Number: US-PFIZER INC-2018187768

PATIENT
  Age: 46 Year
  Sex: Female
  Weight: 89.36 kg

DRUGS (1)
  1. NEURONTIN [Suspect]
     Active Substance: GABAPENTIN
     Indication: NEURALGIA
     Dosage: 1200 MG, 3X/DAY
     Route: 048

REACTIONS (9)
  - Salivary gland enlargement [Unknown]
  - Salivary gland pain [Unknown]
  - Product use in unapproved indication [Unknown]
  - Weight increased [Unknown]
  - Pharyngeal oedema [Unknown]
  - Dyspnoea [Unknown]
  - Swollen tongue [Unknown]
  - Dyspepsia [Unknown]
  - Tongue discomfort [Unknown]
